FAERS Safety Report 12313123 (Version 3)
Quarter: 2017Q1

REPORT INFORMATION
  Report Type: Spontaneous
  Country: US (occurrence: US)
  Receive Date: 20160428
  Receipt Date: 20170116
  Transmission Date: 20170428
  Serious: Yes (Hospitalization, Other)
  Sender: FDA-Public Use
  Company Number: US-ROCHE-1749038

PATIENT
  Age: 62 Year
  Sex: Male

DRUGS (1)
  1. CELLCEPT [Suspect]
     Active Substance: MYCOPHENOLATE MOFETIL\MYCOPHENOLATE MOFETIL HYDROCHLORIDE
     Indication: MYASTHENIA GRAVIS
     Route: 048
     Dates: start: 2009

REACTIONS (17)
  - Skin bacterial infection [Unknown]
  - Splinter [Unknown]
  - Renal failure [Unknown]
  - Infection [Unknown]
  - Herpes zoster [Unknown]
  - Red blood cell count abnormal [Unknown]
  - Cough [Not Recovered/Not Resolved]
  - Blood glucose decreased [Unknown]
  - Aspiration [Not Recovered/Not Resolved]
  - Pneumonia aspiration [Unknown]
  - Gastrooesophageal reflux disease [Not Recovered/Not Resolved]
  - Oesophageal disorder [Not Recovered/Not Resolved]
  - Dehydration [Unknown]
  - Decreased immune responsiveness [Not Recovered/Not Resolved]
  - Dizziness [Unknown]
  - White blood cell count abnormal [Unknown]
  - Blood disorder [Not Recovered/Not Resolved]

NARRATIVE: CASE EVENT DATE: 2014
